FAERS Safety Report 5236773-8 (Version None)
Quarter: 2007Q1

REPORT INFORMATION
  Report Type: 
  Country: None (occurrence: None)
  Receive Date: 20061208
  Receipt Date: 20041209
  Transmission Date: 20070707
  Serious: Yes (Other)
  Sender: FDA-Public Use
  Company Number: 2004UW25166

PATIENT
  Age: 52 Year

DRUGS (5)
  1. CRESTOR [Suspect]
     Dosage: 20 MG PO
     Route: 048
  2. DIOVAN HCT [Concomitant]
  3. PAXIL [Concomitant]
  4. METAFORM [Concomitant]
  5. VITAMINS [Concomitant]

REACTIONS (4)
  - CHROMATURIA [None]
  - DIZZINESS [None]
  - FATIGUE [None]
  - URINE ODOUR ABNORMAL [None]
